FAERS Safety Report 12844859 (Version 2)
Quarter: 2016Q4

REPORT INFORMATION
  Report Type: Report from Study
  Country: US (occurrence: US)
  Receive Date: 20161013
  Receipt Date: 20161128
  Transmission Date: 20170207
  Serious: Yes (Hospitalization, Other)
  Sender: FDA-Public Use
  Company Number: US-AMGEN-USASL2016138481

PATIENT
  Age: 56 Year
  Sex: Female

DRUGS (2)
  1. ENBREL [Suspect]
     Active Substance: ETANERCEPT
     Dosage: 50 MG, QWK
     Route: 065
     Dates: start: 20161118
  2. ENBREL [Suspect]
     Active Substance: ETANERCEPT
     Indication: RHEUMATOID ARTHRITIS
     Dosage: 50 MG, QWK
     Route: 065

REACTIONS (10)
  - Surgery [Unknown]
  - Foot deformity [Unknown]
  - Urinary tract infection [Unknown]
  - Urinary retention [Unknown]
  - Rheumatoid nodule [Not Recovered/Not Resolved]
  - Shoulder operation [Unknown]
  - Bladder disorder [Unknown]
  - Toe operation [Unknown]
  - Musculoskeletal stiffness [Unknown]
  - Transfusion reaction [Unknown]

NARRATIVE: CASE EVENT DATE: 2016
